FAERS Safety Report 18232425 (Version 1)
Quarter: 2020Q3

REPORT INFORMATION
  Report Type: Spontaneous
  Country: US (occurrence: US)
  Receive Date: 20200904
  Receipt Date: 20200904
  Transmission Date: 20201103
  Serious: Yes (Other)
  Sender: FDA-Public Use
  Company Number: US-AMERICAN REGENT INC-2020001026

PATIENT
  Age: 40 Year
  Sex: Female
  Weight: 63.49 kg

DRUGS (2)
  1. FERROUS SULFATE. [Concomitant]
     Active Substance: FERROUS SULFATE
     Indication: PRODUCT USED FOR UNKNOWN INDICATION
     Dosage: 325 MILLIGRAM, BID
     Route: 048
     Dates: start: 201407, end: 20200226
  2. INJECTAFER [Suspect]
     Active Substance: FERRIC CARBOXYMALTOSE
     Indication: IRON DEFICIENCY ANAEMIA
     Dosage: 750 MILLIGRAM, SINGLE
     Route: 042
     Dates: start: 20200226, end: 20200226

REACTIONS (3)
  - Myalgia [Recovered/Resolved]
  - Hypophosphataemia [Recovered/Resolved]
  - Serum ferritin abnormal [Unknown]

NARRATIVE: CASE EVENT DATE: 20200303
